FAERS Safety Report 5100198-6 (Version None)
Quarter: 2006Q3

REPORT INFORMATION
  Report Type: 
  Country: None (occurrence: None)
  Receive Date: 20060731
  Receipt Date: 20060516
  Transmission Date: 20061208
  Serious: No
  Sender: FDA-Public Use
  Company Number: 2006PV013891

PATIENT
  Age: 64 Year
  Sex: Female
  Weight: 122.4712 kg

DRUGS (6)
  1. BYETTA [Suspect]
     Indication: DIABETES MELLITUS NON-INSULIN-DEPENDENT
     Dosage: 5 MCG;SC
     Route: 058
     Dates: start: 20060516
  2. HUMULIN [Concomitant]
  3. LANTUS [Concomitant]
  4. NADOLOL [Concomitant]
  5. ALTACE [Concomitant]
  6. ALTACE [Concomitant]

REACTIONS (2)
  - INJECTION SITE HAEMORRHAGE [None]
  - MEDICATION ERROR [None]
